FAERS Safety Report 9656378 (Version 7)
Quarter: 2014Q3

REPORT INFORMATION
  Report Type: Spontaneous
  Country: US (occurrence: US)
  Receive Date: 20131026
  Receipt Date: 20140715
  Transmission Date: 20150326
  Serious: No
  Sender: FDA-Public Use
  Company Number: US-B.I. PHARMACEUTICALS,INC./RIDGEFIELD-2013-BI-32873BP

PATIENT
  Age: 68 Year
  Sex: Male
  Weight: 95 kg

DRUGS (9)
  1. COMBIVENT [Suspect]
     Active Substance: ALBUTEROL SULFATE\IPRATROPIUM BROMIDE
     Indication: CHRONIC OBSTRUCTIVE PULMONARY DISEASE
     Dosage: DOSE PER APPLICATION : 20 MCG / 100 MCG; DAILY DOSE: 80 MCG / 400 MCG
     Route: 055
     Dates: start: 201306
  2. FLOVENT [Concomitant]
     Active Substance: FLUTICASONE PROPIONATE
     Indication: BRONCHITIS CHRONIC
     Dosage: 4 PUF
     Route: 055
  3. COMBIVENT [Suspect]
     Active Substance: ALBUTEROL SULFATE\IPRATROPIUM BROMIDE
     Indication: BRONCHITIS CHRONIC
     Dosage: DOSE PER APPLICATION : 20 MCG / 100 MCG; DAILY DOSE: 80 MCG / 400 MCG
     Route: 055
     Dates: start: 201307
  4. FLOVENT [Concomitant]
     Active Substance: FLUTICASONE PROPIONATE
     Dosage: 2 PUF
     Route: 055
  5. BUFFERIN [Concomitant]
     Active Substance: ASPIRIN
     Route: 048
  6. PROAIR HFA [Concomitant]
     Active Substance: ALBUTEROL SULFATE
     Indication: CHRONIC OBSTRUCTIVE PULMONARY DISEASE
     Route: 055
     Dates: start: 201306
  7. FLOVENT [Concomitant]
     Active Substance: FLUTICASONE PROPIONATE
     Indication: CHRONIC OBSTRUCTIVE PULMONARY DISEASE
     Dosage: 4 PUF
     Route: 055
  8. FLOVENT [Concomitant]
     Active Substance: FLUTICASONE PROPIONATE
     Route: 055
     Dates: start: 2005
  9. ASPIRIN. [Concomitant]
     Active Substance: ASPIRIN
     Indication: ARTHRITIS
     Route: 048

REACTIONS (20)
  - Dyspnoea [Not Recovered/Not Resolved]
  - Stomatitis [Not Recovered/Not Resolved]
  - Tremor [Not Recovered/Not Resolved]
  - Product quality issue [Unknown]
  - Product quality issue [Recovered/Resolved]
  - Swollen tongue [Not Recovered/Not Resolved]
  - Product quality issue [Recovered/Resolved]
  - Dyspnoea [Not Recovered/Not Resolved]
  - Lip exfoliation [Recovered/Resolved]
  - Skin exfoliation [Recovered/Resolved]
  - Oral mucosal exfoliation [Not Recovered/Not Resolved]
  - Headache [Not Recovered/Not Resolved]
  - Retching [Recovered/Resolved]
  - Rhinorrhoea [Recovered/Resolved]
  - Product quality issue [Recovered/Resolved]
  - Dyspnoea [Recovered/Resolved]
  - Nervousness [Not Recovered/Not Resolved]
  - Gingival injury [Unknown]
  - Off label use [Unknown]
  - Drug effect decreased [Not Recovered/Not Resolved]

NARRATIVE: CASE EVENT DATE: 201306
